FAERS Safety Report 4314323-8 (Version None)
Quarter: 2004Q1

REPORT INFORMATION
  Report Type: 
  Country: None (occurrence: None)
  Receive Date: 20040309
  Receipt Date: 20031008
  Transmission Date: 20041129
  Serious: Yes (Other)
  Sender: FDA-Public Use
  Company Number: WAES 0310USA01310

PATIENT
  Age: 93 Year
  Sex: Male
  Weight: 74 kg

DRUGS (9)
  1. TYLENOL (CAPLET) [Concomitant]
     Route: 048
  2. ASPIRIN [Concomitant]
     Route: 048
     Dates: start: 20031001
  3. ATENOLOL [Concomitant]
     Route: 048
     Dates: start: 20010601
  4. LIPITOR [Concomitant]
     Dates: start: 20000101
  5. DIGOXIN [Concomitant]
     Route: 048
     Dates: start: 20000101
  6. IMDUR [Concomitant]
     Route: 048
     Dates: start: 20020801
  7. RANITIDINE [Concomitant]
     Route: 048
     Dates: start: 20010401
  8. VIOXX [Suspect]
     Indication: ARTHROPATHY
     Route: 048
     Dates: start: 20031001, end: 20031008
  9. COUMADIN [Concomitant]
     Dates: start: 20000101

REACTIONS (2)
  - CARDIAC FAILURE CONGESTIVE [None]
  - PLEURAL EFFUSION [None]
